FAERS Safety Report 6299433-0 (Version None)
Quarter: 2009Q3

REPORT INFORMATION
  Report Type: 
  Country: None (occurrence: None)
  Receive Date: 20090806
  Receipt Date: 20090728
  Transmission Date: 20100115
  Serious: Yes (Hospitalization, Disabling)
  Sender: FDA-Public Use
  Company Number: A0787463A

PATIENT
  Age: 60 Year
  Sex: Male

DRUGS (2)
  1. AVANDIA [Suspect]
     Indication: DIABETES MELLITUS
     Route: 048
     Dates: start: 20040201
  2. AVANDAMET [Suspect]
     Route: 048
     Dates: start: 20040201, end: 20060301

REACTIONS (2)
  - CARDIAC FAILURE CONGESTIVE [None]
  - STENT PLACEMENT [None]
